FAERS Safety Report 11200244 (Version 6)
Quarter: 2016Q4

REPORT INFORMATION
  Report Type: Spontaneous
  Country: US (occurrence: US)
  Receive Date: 20150618
  Receipt Date: 20161220
  Transmission Date: 20170206
  Serious: Yes (Hospitalization, Congenital Anomaly, Other)
  Sender: FDA-Public Use
  Company Number: US-APOTEX-2014AP002832

PATIENT
  Sex: Male

DRUGS (2)
  1. PAXIL [Suspect]
     Active Substance: PAROXETINE HYDROCHLORIDE
     Indication: PRODUCT USED FOR UNKNOWN INDICATION
     Dosage: 20 MG, BID
     Route: 064
     Dates: start: 2000, end: 2004
  2. PAXIL [Suspect]
     Active Substance: PAROXETINE HYDROCHLORIDE
     Dosage: 40 MG, UNKNOWN
     Route: 064

REACTIONS (13)
  - Aortic valve stenosis [Unknown]
  - Quality of life decreased [Not Recovered/Not Resolved]
  - Tachycardia [Unknown]
  - Coarctation of the aorta [Unknown]
  - Bicuspid aortic valve [Unknown]
  - Pain [Not Recovered/Not Resolved]
  - Anxiety [Not Recovered/Not Resolved]
  - Developmental delay [Unknown]
  - Cardiac disorder [Not Recovered/Not Resolved]
  - Cardiac murmur [Unknown]
  - Injury [Not Recovered/Not Resolved]
  - Foetal exposure during pregnancy [Not Recovered/Not Resolved]
  - Pulmonary hypertension [Unknown]

NARRATIVE: CASE EVENT DATE: 20010627
